FAERS Safety Report 11771060 (Version 2)
Quarter: 2015Q4

REPORT INFORMATION
  Report Type: Spontaneous
  Country: PL (occurrence: PL)
  Receive Date: 20151124
  Receipt Date: 20151130
  Transmission Date: 20160304
  Serious: Yes (Hospitalization)
  Sender: FDA-Public Use
  Company Number: PL-ROCHE-1663121

PATIENT
  Age: 41 Year
  Sex: Female

DRUGS (6)
  1. CELLCEPT [Suspect]
     Active Substance: MYCOPHENOLATE MOFETIL\MYCOPHENOLATE MOFETIL HYDROCHLORIDE
     Indication: RENAL TRANSPLANT
     Dosage: 2X750 MG
     Route: 065
     Dates: end: 2014
  2. BISOCARD [Concomitant]
     Active Substance: BISOPROLOL
     Dosage: 1X5 MG
     Route: 065
  3. ENCORTON [Concomitant]
     Active Substance: PREDNISONE
     Dosage: 5 MG IN THE MORNING
     Route: 065
  4. CICLOSPORIN [Concomitant]
     Active Substance: CYCLOSPORINE
     Dosage: 2X75 MG
     Route: 065
  5. AMLODIPINE [Concomitant]
     Active Substance: AMLODIPINE BESYLATE
     Dosage: 1X10 MG
     Route: 065
  6. CYMEVENE [Suspect]
     Active Substance: GANCICLOVIR
     Indication: CYTOMEGALOVIRUS INFECTION
     Route: 065
     Dates: start: 201407

REACTIONS (13)
  - Diarrhoea [Recovered/Resolved]
  - Escherichia urinary tract infection [Unknown]
  - Lung neoplasm [Unknown]
  - Abdominal pain [Recovered/Resolved]
  - Hypoaesthesia [Unknown]
  - Transplant dysfunction [Unknown]
  - Proteinuria [Unknown]
  - Cytomegalovirus infection [Unknown]
  - Productive cough [Unknown]
  - Weight decreased [Unknown]
  - Urinary tract infection [Unknown]
  - Pancreatitis chronic [Unknown]
  - Muscle spasms [Unknown]
